FAERS Safety Report 5262242-5 (Version None)
Quarter: 2007Q1

REPORT INFORMATION
  Report Type: 
  Country: None (occurrence: None)
  Receive Date: 20070312
  Receipt Date: 20070227
  Transmission Date: 20070707
  Serious: Yes (Death, Life-Threatening, Hospitalization, Other)
  Sender: FDA-Public Use
  Company Number: NL-NOVOPROD-254088

PATIENT
  Sex: Female
  Weight: 50 kg

DRUGS (10)
  1. NOVOSEVEN [Suspect]
     Indication: CEREBRAL HAEMORRHAGE
     Dosage: 80 UG/KG, SINGLE
     Route: 042
     Dates: start: 20060612, end: 20060612
  2. TELMISARTAN [Concomitant]
     Dosage: 40 MG, QD
     Route: 048
     Dates: start: 20050114
  3. NITRAZEPAM [Concomitant]
     Dosage: 5 MG, QD
     Route: 048
     Dates: start: 19910101
  4. CALCI-CHEW [Concomitant]
     Dosage: 1.25 MG, QD
     Route: 048
     Dates: start: 19910101
  5. FENTANYL [Concomitant]
     Dosage: 6 MG, QD
     Dates: start: 20041201
  6. LAKTULOSE [Concomitant]
     Dates: start: 20060616
  7. FRAXIPARINE [Concomitant]
     Dosage: UNK, UNK
     Dates: start: 20060616
  8. DURAGESIC-100 [Concomitant]
     Dosage: 25 UNK, UNK
     Route: 008
     Dates: start: 20040101
  9. MOGADON [Concomitant]
     Dosage: 5 MG, QD
     Dates: start: 19910101
  10. MICARDIS [Concomitant]
     Dosage: 40 MG, QD
     Dates: start: 20050101

REACTIONS (6)
  - CARDIAC FAILURE [None]
  - DEHYDRATION [None]
  - MYOCARDIAL INFARCTION [None]
  - SUDDEN DEATH [None]
  - THERAPEUTIC AGENT TOXICITY [None]
  - VENTRICULAR FIBRILLATION [None]
